FAERS Safety Report 20501338 (Version 1)
Quarter: 2022Q1

REPORT INFORMATION
  Report Type: Spontaneous
  Country: US (occurrence: US)
  Receive Date: 20220222
  Receipt Date: 20220222
  Transmission Date: 20220423
  Serious: No
  Sender: FDA-Public Use
  Company Number: US-PFIZER INC-202200246656

PATIENT
  Age: 54 Year

DRUGS (1)
  1. IBRANCE [Suspect]
     Active Substance: PALBOCICLIB
     Dosage: 125 MG, CYCLIC (TAKE 1 TABLET (125MG) BY MOUTH DAILY ON DAYS 1 THROUGH 21 EVERY 28 DAYS)
     Route: 048
     Dates: start: 20171108

REACTIONS (2)
  - COVID-19 [Unknown]
  - White blood cell count decreased [Unknown]

NARRATIVE: CASE EVENT DATE: 20220203
